FAERS Safety Report 7032328-3 (Version None)
Quarter: 2010Q4

REPORT INFORMATION
  Report Type: 
  Country: None (occurrence: None)
  Receive Date: 20101007
  Receipt Date: 20100923
  Transmission Date: 20110411
  Serious: Yes (Death, Hospitalization, Other)
  Sender: FDA-Public Use
  Company Number: DE-GENZYME-CAMP-1001013

PATIENT
  Sex: Male

DRUGS (7)
  1. CAMPATH [Suspect]
     Indication: CHRONIC LYMPHOCYTIC LEUKAEMIA
     Dosage: 30 MG, UNK
     Route: 058
     Dates: start: 20080526, end: 20081015
  2. FLUDARA [Suspect]
     Indication: CHRONIC LYMPHOCYTIC LEUKAEMIA
     Dosage: 67.5 MG, UNK
     Route: 048
     Dates: start: 20080526, end: 20081015
  3. ENDOXAN [Suspect]
     Indication: CHRONIC LYMPHOCYTIC LEUKAEMIA
     Dosage: 420 MG, UNK
     Route: 048
     Dates: start: 20080526, end: 20081015
  4. RITUXIMAB [Concomitant]
     Indication: CHRONIC LYMPHOCYTIC LEUKAEMIA
  5. DOXORUBICIN W [Concomitant]
     Indication: CHRONIC LYMPHOCYTIC LEUKAEMIA
  6. VINCRISTINE [Concomitant]
     Indication: CHRONIC LYMPHOCYTIC LEUKAEMIA
  7. PREDNISONE [Concomitant]
     Indication: CHRONIC LYMPHOCYTIC LEUKAEMIA

REACTIONS (3)
  - INFECTIVE EXACERBATION OF CHRONIC OBSTRUCTIVE AIRWAYS DISEASE [None]
  - PULMONARY EMBOLISM [None]
  - RESPIRATORY FAILURE [None]
